FAERS Safety Report 8549134-0 (Version None)
Quarter: 2012Q3

REPORT INFORMATION
  Report Type: 
  Country: None (occurrence: None)
  Receive Date: 20120730
  Receipt Date: 20120720
  Transmission Date: 20120928
  Serious: Yes (Hospitalization)
  Sender: FDA-Public Use
  Company Number: US-BAYER-2011-119592

PATIENT
  Age: 34 Year
  Sex: Female
  Weight: 83.9 kg

DRUGS (3)
  1. FERROUS SULFATE TAB [Concomitant]
  2. YASMIN [Suspect]
     Indication: MENSTRUAL CYCLE MANAGEMENT
  3. YASMIN [Suspect]
     Indication: MENORRHAGIA
     Dosage: UNK
     Route: 048
     Dates: start: 20060509, end: 20060822

REACTIONS (7)
  - EMOTIONAL DISTRESS [None]
  - ATELECTASIS [None]
  - INJURY [None]
  - PLEURAL EFFUSION [None]
  - PULMONARY EMBOLISM [None]
  - ANXIETY [None]
  - PAIN [None]
